FAERS Safety Report 9158874 (Version 1)
Quarter: 2013Q1

REPORT INFORMATION
  Report Type: Spontaneous
  Country: DK (occurrence: None)
  Receive Date: 20130211
  Receipt Date: 20130211
  Transmission Date: 20140127
  Serious: Yes (Other)
  Sender: FDA-Public Use
  Company Number: 2013MA000986

PATIENT
  Sex: Female

DRUGS (1)
  1. MIRTAZAPINE [Suspect]

REACTIONS (17)
  - Insomnia [None]
  - Anxiety [None]
  - Pyrexia [None]
  - Hyperhidrosis [None]
  - Paraesthesia [None]
  - Arthralgia [None]
  - Decreased appetite [None]
  - Dysphagia [None]
  - Weight decreased [None]
  - Tongue blistering [None]
  - Paraesthesia [None]
  - Feeling hot [None]
  - Dizziness [None]
  - Dry throat [None]
  - Sensation of foreign body [None]
  - Burning sensation [None]
  - Tooth disorder [None]
